FAERS Safety Report 4728578-9 (Version None)
Quarter: 2005Q3

REPORT INFORMATION
  Report Type: 
  Country: None (occurrence: None)
  Receive Date: 20050727
  Receipt Date: 20050720
  Transmission Date: 20060218
  Serious: Yes (Other)
  Sender: FDA-Public Use
  Company Number: 2005104109

PATIENT
  Age: 79 Year
  Sex: Female

DRUGS (8)
  1. LIPITOR [Suspect]
     Indication: BLOOD CHOLESTEROL INCREASED
  2. ZOLOFT [Suspect]
     Indication: DEPRESSION
     Dosage: 100 MG (1 D)
  3. MEMANTINE HCL [Suspect]
     Indication: DEMENTIA ALZHEIMER'S TYPE
     Dosage: 20 MG (10 MG, 2 IN 1 D), ORAL
     Route: 048
  4. MECLIZINE [Suspect]
     Indication: VERTIGO
  5. ACIPHEX [Suspect]
     Indication: VITAMIN B12 DEFICIENCY
  6. LEVOTHYROXINE SODIUM [Suspect]
     Indication: HYPOTHYROIDISM
  7. VITAMIN B12 [Concomitant]
  8. ALPRAZOLAM [Concomitant]

REACTIONS (2)
  - DRUG INTERACTION [None]
  - HEADACHE [None]
